APPROVED DRUG PRODUCT: AMINOPHYLLINE
Active Ingredient: AMINOPHYLLINE
Strength: 25MG/ML
Dosage Form/Route: INJECTABLE;INJECTION
Application: A087601 | Product #001
Applicant: HOSPIRA INC
Approved: Jul 23, 1982 | RLD: No | RS: No | Type: DISCN